FAERS Safety Report 11805369 (Version 2)
Quarter: 2016Q4

REPORT INFORMATION
  Report Type: Report from Study
  Country: US (occurrence: US)
  Receive Date: 20151207
  Receipt Date: 20161213
  Transmission Date: 20170206
  Serious: Yes (Hospitalization, Other)
  Sender: FDA-Public Use
  Company Number: US-ROCHE-1667820

PATIENT
  Age: 66 Year
  Sex: Female
  Weight: 60.3 kg

DRUGS (12)
  1. BEVACIZUMAB [Suspect]
     Active Substance: BEVACIZUMAB
     Indication: HER-2 POSITIVE BREAST CANCER
     Dosage: 5 MG/KG OVER 30-90 MINUTES AS PART OF 28 DAY CYCLE?COURSE ID: 1001
     Route: 042
     Dates: start: 20091124
  2. BEVACIZUMAB [Suspect]
     Active Substance: BEVACIZUMAB
     Dosage: COURSE ID: 1004
     Route: 042
     Dates: start: 20100216
  3. DASATINIB [Suspect]
     Active Substance: DASATINIB
     Indication: HER-2 POSITIVE BREAST CANCER
     Dosage: AS PART OF 28 DAY CYCLE. 70 MG LATER REDUCED TO 50 MG?COURSE ID: 1001
     Route: 048
     Dates: start: 20091124
  4. BEVACIZUMAB [Suspect]
     Active Substance: BEVACIZUMAB
     Dosage: COURSE ID: 1003
     Route: 042
     Dates: start: 20100119
  5. DASATINIB [Suspect]
     Active Substance: DASATINIB
     Dosage: COURSE ID: 1003
     Route: 042
     Dates: start: 20100119
  6. DASATINIB [Suspect]
     Active Substance: DASATINIB
     Dosage: COURSE ID: 1002
     Route: 042
     Dates: start: 20091223
  7. DASATINIB [Suspect]
     Active Substance: DASATINIB
     Dosage: COURSE ID: 1004
     Route: 042
     Dates: start: 20100216
  8. AMARYL [Suspect]
     Active Substance: GLIMEPIRIDE
     Indication: HER-2 POSITIVE BREAST CANCER
     Route: 065
  9. DASATINIB [Suspect]
     Active Substance: DASATINIB
     Dosage: COURSE ID: 1005
     Route: 042
     Dates: start: 20100315
  10. TRASTUZUMAB [Suspect]
     Active Substance: TRASTUZUMAB
     Indication: HER-2 POSITIVE BREAST CANCER
     Route: 065
  11. BEVACIZUMAB [Suspect]
     Active Substance: BEVACIZUMAB
     Dosage: COURSE ID: 1002
     Route: 042
     Dates: start: 20091223
  12. BEVACIZUMAB [Suspect]
     Active Substance: BEVACIZUMAB
     Dosage: COURSE ID: 1005
     Route: 042
     Dates: start: 20100315

REACTIONS (3)
  - Pulmonary hypertension [Recovering/Resolving]
  - Carbon monoxide diffusing capacity decreased [Unknown]
  - Lymphocyte count decreased [Unknown]

NARRATIVE: CASE EVENT DATE: 20100419
